FAERS Safety Report 17492384 (Version 1)
Quarter: 2020Q1

REPORT INFORMATION
  Report Type: Spontaneous
  Country: GB (occurrence: GB)
  Receive Date: 20200304
  Receipt Date: 20200304
  Transmission Date: 20200409
  Serious: Yes (Other)
  Sender: FDA-Public Use
  Company Number: GB-TEVA-2020-GB-1193821

PATIENT
  Age: 81 Year
  Sex: Male
  Weight: 75.7 kg

DRUGS (13)
  1. CLARITHROMYCIN. [Suspect]
     Active Substance: CLARITHROMYCIN
     Indication: ABDOMINAL INFECTION
     Dosage: 1000 MILLIGRAM
     Route: 048
     Dates: start: 20200209, end: 20200213
  2. BISOPROLOL [Concomitant]
     Active Substance: BISOPROLOL
  3. ISOSORBIDE MONONITRATE. [Concomitant]
     Active Substance: ISOSORBIDE MONONITRATE
  4. DEGARELIX [Concomitant]
     Active Substance: DEGARELIX
  5. FOLIC ACID. [Concomitant]
     Active Substance: FOLIC ACID
  6. BUMETANIDE. [Concomitant]
     Active Substance: BUMETANIDE
  7. NYSTATIN. [Concomitant]
     Active Substance: NYSTATIN
  8. BICALUTAMIDE. [Concomitant]
     Active Substance: BICALUTAMIDE
  9. RAMIPRIL. [Concomitant]
     Active Substance: RAMIPRIL
  10. AMOXICILLIN. [Concomitant]
     Active Substance: AMOXICILLIN
  11. ATORVASTATIN [Concomitant]
     Active Substance: ATORVASTATIN
  12. FLUCONAZOLE. [Concomitant]
     Active Substance: FLUCONAZOLE
  13. SPIRONOLACTONE. [Concomitant]
     Active Substance: SPIRONOLACTONE

REACTIONS (4)
  - Dysphagia [Unknown]
  - Oral mucosal blistering [Unknown]
  - Stevens-Johnson syndrome [Not Recovered/Not Resolved]
  - Candida infection [Unknown]

NARRATIVE: CASE EVENT DATE: 20200213
